FAERS Safety Report 8133379-8 (Version None)
Quarter: 2012Q1

REPORT INFORMATION
  Report Type: 
  Country: None (occurrence: None)
  Receive Date: 20120207
  Receipt Date: 20120117
  Transmission Date: 20120608
  Serious: Yes (Other)
  Sender: FDA-Public Use
  Company Number: 20120017

PATIENT
  Age: 62 Year
  Sex: Male

DRUGS (2)
  1. METHANDROSTENOLONE [Suspect]
     Indication: MUSCLE BUILDING THERAPY
     Dosage: 20-40 MG/WEEK  INJECTION NOS
  2. NANDROLONE DECANOATE [Suspect]
     Indication: MUSCLE BUILDING THERAPY
     Dosage: 400-800  MG/WEEK  INTRAMUSCULAR
     Route: 030

REACTIONS (7)
  - DIASTOLIC DYSFUNCTION [None]
  - CARDIOMYOPATHY [None]
  - SINUS BRADYCARDIA [None]
  - OFF LABEL USE [None]
  - HEPATOMEGALY [None]
  - CARDIOTOXICITY [None]
  - DYSPNOEA [None]
